FAERS Safety Report 9233608 (Version 1)
Quarter: 2013Q2

REPORT INFORMATION
  Report Type: Spontaneous
  Country: US (occurrence: US)
  Receive Date: 20130416
  Receipt Date: 20130416
  Transmission Date: 20140414
  Serious: No
  Sender: FDA-Public Use
  Company Number: US-BANPHARM-20130528

PATIENT
  Age: 36 Year
  Sex: Male
  Weight: 99.77 kg

DRUGS (2)
  1. NAPROXEN SODIUM 220MG [Suspect]
     Indication: ARTHRALGIA
     Dosage: 3 DF, ONCE,
     Route: 048
     Dates: start: 20130102, end: 20130102
  2. ANTIHYPERTENSIVES [Concomitant]

REACTIONS (3)
  - Dizziness [Recovered/Resolved]
  - Incorrect dose administered [Recovered/Resolved]
  - Drug name confusion [Recovered/Resolved]
